FAERS Safety Report 5781045-6 (Version None)
Quarter: 2008Q2

REPORT INFORMATION
  Report Type: 
  Country: None (occurrence: None)
  Receive Date: 20080620
  Receipt Date: 20080609
  Transmission Date: 20081010
  Serious: Yes (Other)
  Sender: FDA-Public Use
  Company Number: US-PFIZER INC-2008049750

PATIENT
  Age: 41 Year
  Sex: Female

DRUGS (2)
  1. CHANTIX [Suspect]
     Route: 048
  2. XANAX [Concomitant]

REACTIONS (4)
  - AGGRESSION [None]
  - ANGER [None]
  - HOMICIDAL IDEATION [None]
  - PANIC ATTACK [None]
